FAERS Safety Report 23758654 (Version 1)
Quarter: 2024Q2

REPORT INFORMATION
  Report Type: Spontaneous
  Country: US (occurrence: None)
  Receive Date: 20240418
  Receipt Date: 20240418
  Transmission Date: 20240716
  Serious: No
  Sender: FDA-Public Use
  Company Number: US-ROCHE-3304900

PATIENT
  Age: 71 Year
  Sex: Female
  Weight: 59.1 kg

DRUGS (4)
  1. AVASTIN [Suspect]
     Active Substance: BEVACIZUMAB
     Indication: Malignant peritoneal neoplasm
     Route: 042
     Dates: start: 20210504
  2. CARBOPLATIN [Concomitant]
     Active Substance: CARBOPLATIN
     Indication: Malignant peritoneal neoplasm
     Dosage: AUC 5
     Route: 042
     Dates: start: 20210504, end: 20220308
  3. TAXOL [Concomitant]
     Active Substance: PACLITAXEL
     Indication: Malignant peritoneal neoplasm
     Route: 042
     Dates: start: 20210504, end: 20220308
  4. TOPOTECAN [Concomitant]
     Active Substance: TOPOTECAN HYDROCHLORIDE
     Indication: Malignant peritoneal neoplasm
     Route: 042
     Dates: start: 20220308

REACTIONS (1)
  - Disease progression [Not Recovered/Not Resolved]
